FAERS Safety Report 4489619-X (Version None)
Quarter: 2004Q4

REPORT INFORMATION
  Report Type: 
  Country: None (occurrence: None)
  Receive Date: 20041026
  Receipt Date: 20041013
  Transmission Date: 20050328
  Serious: Yes (Other)
  Sender: FDA-Public Use
  Company Number: 2004196917JP

PATIENT
  Sex: Female
  Weight: 1 kg

DRUGS (2)
  1. IDAMYCIN [Suspect]
     Indication: ACUTE PROMYELOCYTIC LEUKAEMIA
     Dosage: 20 MG, EVERY OTHER DAY; IV
     Route: 042
     Dates: start: 20040107, end: 20040113
  2. VESANOID [Suspect]
     Indication: ACUTE PROMYELOCYTIC LEUKAEMIA
     Dosage: 70 MG, QD; ORAL
     Route: 048
     Dates: start: 20040106, end: 20040212

REACTIONS (19)
  - APGAR SCORE LOW [None]
  - BLOOD CREATINE PHOSPHOKINASE BB INCREASED [None]
  - BLOOD CREATINE PHOSPHOKINASE INCREASED [None]
  - BRADYCARDIA NEONATAL [None]
  - CAESAREAN SECTION [None]
  - CARDIOVASCULAR DISORDER [None]
  - CEREBRAL HAEMORRHAGE NEONATAL [None]
  - CEREBRAL ISCHAEMIA [None]
  - DEVELOPMENTAL DELAY [None]
  - DRUG EXPOSURE DURING PREGNANCY [None]
  - DRUG TOXICITY [None]
  - FOETAL DISTRESS SYNDROME [None]
  - GROWTH RETARDATION [None]
  - INFARCTION [None]
  - NEONATAL DISORDER [None]
  - PLACENTAL DISORDER [None]
  - PREMATURE BABY [None]
  - SMALL FOR DATES BABY [None]
  - WHITE BLOOD CELL COUNT INCREASED [None]
